FAERS Safety Report 6485335-3 (Version None)
Quarter: 2009Q4

REPORT INFORMATION
  Report Type: 
  Country: None (occurrence: None)
  Receive Date: 20091209
  Receipt Date: 20090620
  Transmission Date: 20100525
  Serious: No
  Sender: FDA-Public Use
  Company Number: US-AMGEN-KDL352554

PATIENT
  Sex: Female
  Weight: 61.5 kg

DRUGS (5)
  1. ENBREL [Suspect]
     Indication: ANKYLOSING SPONDYLITIS
     Route: 058
     Dates: start: 20090401
  2. ENBREL [Suspect]
     Indication: JUVENILE ARTHRITIS
  3. METHOTREXATE [Concomitant]
  4. PREVACID [Concomitant]
     Dates: start: 20000620
  5. CONCERTA [Concomitant]

REACTIONS (4)
  - DIZZINESS [None]
  - MYCOPLASMA INFECTION [None]
  - OROPHARYNGEAL PAIN [None]
  - UPPER RESPIRATORY TRACT INFECTION [None]
